FAERS Safety Report 6367945-7 (Version None)
Quarter: 2009Q3

REPORT INFORMATION
  Report Type: 
  Country: None (occurrence: None)
  Receive Date: 20090922
  Receipt Date: 20090528
  Transmission Date: 20100115
  Serious: No
  Sender: FDA-Public Use
  Company Number: A0774819A

PATIENT
  Sex: Female

DRUGS (4)
  1. SEREVENT [Suspect]
     Indication: CHRONIC OBSTRUCTIVE PULMONARY DISEASE
     Dosage: 1PUFF TWICE PER DAY
     Route: 055
  2. SINGULAIR [Concomitant]
  3. BLOOD PRESSURE MEDICATION [Concomitant]
  4. ANTIDEPRESSANT (UNSPECIFIED) [Concomitant]

REACTIONS (2)
  - PRODUCT QUALITY ISSUE [None]
  - RESPIRATORY DISORDER [None]
